FAERS Safety Report 17222816 (Version 7)
Quarter: 2021Q2

REPORT INFORMATION
  Report Type: Report from Study
  Country: JP (occurrence: JP)
  Receive Date: 20200102
  Receipt Date: 20210531
  Transmission Date: 20210716
  Serious: Yes (Death, Other)
  Sender: FDA-Public Use
  Company Number: JP-ASTELLAS-2019JP030114

PATIENT
  Age: 67 Year
  Sex: Female
  Weight: 62 kg

DRUGS (13)
  1. MEROPENEM. [Concomitant]
     Active Substance: MEROPENEM
     Indication: PRODUCT USED FOR UNKNOWN INDICATION
     Dosage: UNK UNK, UNKNOWN FREQ.
     Route: 041
     Dates: start: 201906
  2. PIPERACILLIN NA [Concomitant]
     Indication: PRODUCT USED FOR UNKNOWN INDICATION
     Dosage: UNK UNK, UNKNOWN FREQ.
     Route: 065
     Dates: start: 201906, end: 201906
  3. PIPERACILLIN NA [Concomitant]
     Dosage: UNK UNK, UNKNOWN FREQ.
     Route: 065
     Dates: start: 201907, end: 201907
  4. MEROPENEM. [Concomitant]
     Active Substance: MEROPENEM
     Dosage: UNK UNK, UNKNOWN FREQ.
     Route: 041
  5. ASP2215 [Suspect]
     Active Substance: GILTERITINIB
     Indication: ACUTE MYELOID LEUKAEMIA RECURRENT
     Route: 048
     Dates: start: 20190705, end: 20190816
  6. ASP2215 [Suspect]
     Active Substance: GILTERITINIB
     Route: 048
     Dates: start: 20190828, end: 20190903
  7. TAZOBACTAM [Concomitant]
     Active Substance: TAZOBACTAM
     Dosage: UNK UNK, UNKNOWN FREQ.
     Route: 065
     Dates: start: 201907, end: 201907
  8. TAZOBACTAM [Concomitant]
     Active Substance: TAZOBACTAM
     Dosage: UNK UNK, UNKNOWN FREQ.
     Route: 065
     Dates: start: 201908, end: 201908
  9. ASP2215 [Suspect]
     Active Substance: GILTERITINIB
     Route: 048
     Dates: end: 20190823
  10. MICAFUNGIN SODIUM [Concomitant]
     Active Substance: MICAFUNGIN SODIUM
     Indication: PRODUCT USED FOR UNKNOWN INDICATION
     Dosage: 100 MG/DAY, UNKNOWN FREQ.
     Route: 041
     Dates: start: 20190712, end: 20190726
  11. PIPERACILLIN NA [Concomitant]
     Dosage: UNK UNK, UNKNOWN FREQ.
     Route: 065
     Dates: start: 201908, end: 201908
  12. MEROPENEM. [Concomitant]
     Active Substance: MEROPENEM
     Dosage: UNK UNK, UNKNOWN FREQ.
     Route: 041
     Dates: start: 201907, end: 201907
  13. TAZOBACTAM [Concomitant]
     Active Substance: TAZOBACTAM
     Indication: PRODUCT USED FOR UNKNOWN INDICATION
     Dosage: UNK UNK, UNKNOWN FREQ.
     Route: 065
     Dates: start: 201906, end: 201906

REACTIONS (4)
  - Febrile neutropenia [Not Recovered/Not Resolved]
  - Myelosuppression [Unknown]
  - Myocarditis [Fatal]
  - Arrhythmia [Fatal]

NARRATIVE: CASE EVENT DATE: 20190810
